FAERS Safety Report 12551192 (Version 3)
Quarter: 2016Q3

REPORT INFORMATION
  Report Type: Spontaneous
  Country: IT (occurrence: IT)
  Receive Date: 20160713
  Receipt Date: 20160718
  Transmission Date: 20161109
  Serious: Yes (Other)
  Sender: FDA-Public Use
  Company Number: IT-ROCHE-1792642

PATIENT
  Age: 82 Year
  Sex: Male

DRUGS (2)
  1. LUCENTIS [Suspect]
     Active Substance: RANIBIZUMAB
     Indication: RETINAL VEIN OCCLUSION
     Dosage: (0.5 MG/ 0.05 ML)
     Route: 050
     Dates: start: 20150626
  2. LUCENTIS [Suspect]
     Active Substance: RANIBIZUMAB
     Dosage: (0.5 MG/ 0.05 ML)
     Route: 050
     Dates: start: 20160421, end: 20160421

REACTIONS (2)
  - Visual impairment [Recovering/Resolving]
  - Cerebral ischaemia [Recovering/Resolving]

NARRATIVE: CASE EVENT DATE: 20160521
